FAERS Safety Report 19371204 (Version 6)
Quarter: 2024Q1

REPORT INFORMATION
  Report Type: Report from Study
  Country: FR (occurrence: FR)
  Receive Date: 20210604
  Receipt Date: 20240202
  Transmission Date: 20240409
  Serious: Yes (Other)
  Sender: FDA-Public Use
  Company Number: FR-ROCHE-2699740

PATIENT
  Age: 59 Year
  Sex: Female
  Weight: 50.2 kg

DRUGS (13)
  1. BEVACIZUMAB [Suspect]
     Active Substance: BEVACIZUMAB
     Indication: Non-small cell lung cancer
     Dosage: UNK
     Route: 065
     Dates: start: 20200409
  2. XGEVA [Suspect]
     Active Substance: DENOSUMAB
     Indication: Non-small cell lung cancer
     Dosage: UNK
     Route: 065
     Dates: start: 20190211
  3. PACLITAXEL [Suspect]
     Active Substance: PACLITAXEL
     Indication: Non-small cell lung cancer
     Dosage: UNK
     Route: 065
     Dates: start: 20200409, end: 20200615
  4. ATEZOLIZUMAB [Suspect]
     Active Substance: ATEZOLIZUMAB
     Indication: Non-small cell lung cancer
     Dosage: 1200 MILLIGRAM, Q3WK, 24/JUN/2019, 12/JUL/2019, 05/AUG/2019, 26/AUG/2019, 16/SEP/2019, 07/OCT/2019,
     Route: 042
     Dates: start: 20190513
  5. ACETAMINOPHEN [Concomitant]
     Active Substance: ACETAMINOPHEN
     Dosage: UNK
     Dates: start: 20190805
  6. KETOPROFEN [Concomitant]
     Active Substance: KETOPROFEN
     Dosage: UNK, BID
     Dates: start: 20200402, end: 20200404
  7. CALCIUM\CHOLECALCIFEROL [Concomitant]
     Active Substance: CALCIUM\CHOLECALCIFEROL
     Dosage: UNK
     Dates: start: 20190415
  8. TRAMADOL [Concomitant]
     Active Substance: TRAMADOL\TRAMADOL HYDROCHLORIDE
     Dosage: UNK
  9. FLECAINIDE ACETATE [Concomitant]
     Active Substance: FLECAINIDE ACETATE
     Dosage: UNK, QD
  10. CHOLECALCIFEROL [Concomitant]
     Active Substance: CHOLECALCIFEROL
     Dosage: UNK, QD
     Dates: start: 20190211
  11. ELIQUIS [Concomitant]
     Active Substance: APIXABAN
     Dosage: UNK, QD
     Dates: start: 20200703
  12. CARBOPLATIN [Concomitant]
     Active Substance: CARBOPLATIN
     Indication: Neoplasm malignant
     Dosage: MEDICATION DOSE 420 (UNIT NOT SPECIFIED)
  13. PEMETREXED [Concomitant]
     Active Substance: PEMETREXED
     Indication: Neoplasm malignant
     Dosage: MEDICATION DOSE 725 (UNIT NOT SEPCIFIED)

REACTIONS (4)
  - Thrombosis [Recovered/Resolved]
  - Osteonecrosis of jaw [Recovered/Resolved]
  - Stomatitis [Recovered/Resolved]
  - Anaemia [Recovered/Resolved]

NARRATIVE: CASE EVENT DATE: 20200409
